FAERS Safety Report 17120366 (Version 1)
Quarter: 2019Q4

REPORT INFORMATION
  Report Type: Spontaneous
  Country: TN (occurrence: TN)
  Receive Date: 20191206
  Receipt Date: 20191206
  Transmission Date: 20200122
  Serious: No
  Sender: FDA-Public Use
  Company Number: TN-ALKEM LABORATORIES LIMITED-TN-ALKEM-2019-06531

PATIENT
  Age: 46 Year
  Sex: Male

DRUGS (6)
  1. METFORMIN HYDROCHLORIDE. [Suspect]
     Active Substance: METFORMIN HYDROCHLORIDE
     Indication: PRODUCT USED FOR UNKNOWN INDICATION
     Dosage: 850 MILLIGRAM, OD, STOPPED
     Route: 065
     Dates: start: 20000125
  2. PENAMOX [Concomitant]
     Indication: ANGINA PECTORIS
     Dosage: 500 MILLIGRAM, STOPPED
     Route: 065
     Dates: start: 20000208
  3. METFORMIN HYDROCHLORIDE. [Suspect]
     Active Substance: METFORMIN HYDROCHLORIDE
     Dosage: UNK, RESTARTED, STOPPED 48 HOURS LATER
     Route: 065
  4. DAONIL [Concomitant]
     Active Substance: GLYBURIDE
     Indication: PRODUCT USED FOR UNKNOWN INDICATION
     Dosage: 5 MILLIGRAM, STOPPED
     Route: 065
     Dates: start: 20000125
  5. NIFLURIL [Concomitant]
     Indication: ANGINA PECTORIS
     Dosage: 250 MILLIGRAM, STOPPED
     Route: 065
     Dates: start: 20000208
  6. METFORMIN HYDROCHLORIDE. [Suspect]
     Active Substance: METFORMIN HYDROCHLORIDE
     Dosage: UNK, RESTARTED
     Route: 065
     Dates: start: 20000321

REACTIONS (1)
  - Photosensitivity reaction [Unknown]
